FAERS Safety Report 9831073 (Version 1)
Quarter: 2014Q1

REPORT INFORMATION
  Report Type: Spontaneous
  Country: US (occurrence: US)
  Receive Date: 20140120
  Receipt Date: 20140120
  Transmission Date: 20141002
  Serious: Yes (Death, Hospitalization)
  Sender: FDA-Public Use
  Company Number: US-JNJFOC-20140109843

PATIENT
  Age: 29 Year
  Sex: Male

DRUGS (1)
  1. NICOTINE [Suspect]
     Indication: SUICIDE ATTEMPT
     Route: 051

REACTIONS (3)
  - Toxicity to various agents [Fatal]
  - Loss of consciousness [Unknown]
  - Hypoxic-ischaemic encephalopathy [Unknown]
